FAERS Safety Report 5733376-3 (Version None)
Quarter: 2008Q2

REPORT INFORMATION
  Report Type: 
  Country: None (occurrence: None)
  Receive Date: 20080509
  Receipt Date: 20080501
  Transmission Date: 20081010
  Serious: Yes (Hospitalization)
  Sender: FDA-Public Use
  Company Number: US-GENENTECH-260456

PATIENT
  Age: 30 Year
  Sex: Female
  Weight: 43 kg

DRUGS (4)
  1. BEVACIZUMAB [Suspect]
     Indication: METASTATIC GASTRIC CANCER
     Dosage: 7.5 MG/KG, UNK
  2. DOCETAXEL [Concomitant]
     Indication: METASTATIC GASTRIC CANCER
     Dosage: 75 MG/M2, UNK
  3. FLUOROURACIL [Concomitant]
     Indication: METASTATIC GASTRIC CANCER
  4. CISPLATIN [Concomitant]
     Indication: METASTATIC GASTRIC CANCER
     Dosage: 65 MG/M2, UNK

REACTIONS (1)
  - CONVULSION [None]
